FAERS Safety Report 20930817 (Version 1)
Quarter: 2022Q2

REPORT INFORMATION
  Report Type: Spontaneous
  Country: US (occurrence: US)
  Receive Date: 20220608
  Receipt Date: 20220608
  Transmission Date: 20220721
  Serious: No
  Sender: FDA-Public Use
  Company Number: US-009507513-2205USA002960

PATIENT
  Sex: Male

DRUGS (3)
  1. BRIDION [Suspect]
     Active Substance: SUGAMMADEX
     Dosage: 200 MILLIGRAM, ONCE
     Dates: start: 2022
  2. BRIDION [Suspect]
     Active Substance: SUGAMMADEX
     Dosage: 400 MILLIGRAM, ONCE
     Dates: start: 2022
  3. VERSED [Suspect]
     Active Substance: MIDAZOLAM HYDROCHLORIDE
     Dosage: UNK
     Dates: start: 2022

REACTIONS (3)
  - Product label confusion [Unknown]
  - Wrong product administered [Unknown]
  - No adverse event [Unknown]

NARRATIVE: CASE EVENT DATE: 20220101
